FAERS Safety Report 5810774-0 (Version None)
Quarter: 2008Q3

REPORT INFORMATION
  Report Type: 
  Country: None (occurrence: None)
  Receive Date: 20080715
  Receipt Date: 20080709
  Transmission Date: 20090109
  Serious: Yes (Other)
  Sender: FDA-Public Use
  Company Number: DE-AMGEN-US293958

PATIENT

DRUGS (2)
  1. ENBREL [Suspect]
     Indication: PSORIASIS
     Dosage: UNKNOWN
     Route: 058
  2. ISONIAZID [Suspect]
     Dosage: UNKNOWN
     Route: 048

REACTIONS (2)
  - BLOOD BILIRUBIN INCREASED [None]
  - COAGULOPATHY [None]
